FAERS Safety Report 23950944 (Version 1)
Quarter: 2024Q2

REPORT INFORMATION
  Report Type: Report from Study
  Country: US (occurrence: US)
  Receive Date: 20240607
  Receipt Date: 20240607
  Transmission Date: 20240715
  Serious: No
  Sender: FDA-Public Use
  Company Number: US-SPRINGWORKS THERAPEUTICS-SW-001563

PATIENT
  Age: 30 Year
  Sex: Male

DRUGS (3)
  1. NIROGACESTAT [Suspect]
     Active Substance: NIROGACESTAT
     Indication: Connective tissue neoplasm
     Dosage: TAKING 1 PILLS A DAY
     Route: 048
     Dates: start: 20240419
  2. NIROGACESTAT [Suspect]
     Active Substance: NIROGACESTAT
     Indication: Soft tissue neoplasm
  3. MONTELUKAST [Concomitant]
     Active Substance: MONTELUKAST SODIUM
     Indication: Hypersensitivity
     Dosage: UNK

REACTIONS (2)
  - Diarrhoea [Unknown]
  - Intentional underdose [Unknown]

NARRATIVE: CASE EVENT DATE: 20240429
